FAERS Safety Report 24152127 (Version 1)
Quarter: 2024Q3

REPORT INFORMATION
  Report Type: Spontaneous
  Country: SI (occurrence: SI)
  Receive Date: 20240730
  Receipt Date: 20240730
  Transmission Date: 20241016
  Serious: Yes (Life-Threatening, Hospitalization)
  Sender: EPIC PHARM
  Company Number: SI-EPICPHARMA-SI-2024EPCLIT00882

PATIENT

DRUGS (1)
  1. ALBUTEROL SULFATE [Suspect]
     Active Substance: ALBUTEROL SULFATE
     Indication: Product used for unknown indication
     Route: 051

REACTIONS (6)
  - Haemodynamic instability [Unknown]
  - Drug level increased [Recovering/Resolving]
  - Hypotension [Unknown]
  - Tachycardia [Recovered/Resolved]
  - Toxicity to various agents [Unknown]
  - Accidental exposure to product [Unknown]
